FAERS Safety Report 10049175 (Version 2)
Quarter: 2014Q2

REPORT INFORMATION
  Report Type: Report from Study
  Country: GR (occurrence: GR)
  Receive Date: 20140401
  Receipt Date: 20140404
  Transmission Date: 20141212
  Serious: Yes (Other)
  Sender: FDA-Public Use
  Company Number: GR-009507513-1403GRC011892

PATIENT
  Sex: 0

DRUGS (2)
  1. INVANZ [Suspect]
     Indication: KLEBSIELLA INFECTION
     Dosage: DOSE 1 GR, 1 HOUR INFUSION EVERY 24 HRS
     Route: 041
  2. MEROPENEM [Concomitant]
     Indication: KLEBSIELLA INFECTION
     Dosage: 2 GR EVERY 8HRS IN 3HRS OF DURATION INFUSION
     Route: 041

REACTIONS (3)
  - Meningitis aseptic [Unknown]
  - Rash [Unknown]
  - Eosinophilia [Unknown]
